FAERS Safety Report 10510299 (Version 1)
Quarter: 2014Q4

REPORT INFORMATION
  Report Type: Spontaneous
  Country: US (occurrence: None)
  Receive Date: 20141009
  Receipt Date: 20141009
  Transmission Date: 20150528
  Serious: Yes (Disabling, Other)
  Sender: FDA-Public Use
  Company Number: None

PATIENT
  Age: 40 Year
  Sex: Female
  Weight: 57.61 kg

DRUGS (2)
  1. TRISPRINTEC [Suspect]
     Active Substance: ETHINYL ESTRADIOL\NORGESTIMATE
     Indication: PREMENSTRUAL SYNDROME
     Dosage: 1 PILL DAILY ONCE DAILY TAKEN BY MOUTH
     Route: 048
     Dates: start: 20141008
  2. TRISPRINTEC [Suspect]
     Active Substance: ETHINYL ESTRADIOL\NORGESTIMATE
     Indication: MENORRHAGIA
     Dosage: 1 PILL DAILY ONCE DAILY TAKEN BY MOUTH
     Route: 048
     Dates: start: 20141008

REACTIONS (17)
  - Mood altered [None]
  - Anxiety [None]
  - Fatigue [None]
  - Feeling abnormal [None]
  - Libido decreased [None]
  - Palpitations [None]
  - Migraine [None]
  - Impaired work ability [None]
  - Headache [None]
  - Memory impairment [None]
  - Depression [None]
  - Temperature intolerance [None]
  - Food intolerance [None]
  - Insomnia [None]
  - Haemorrhage [None]
  - Dyspnoea [None]
  - Exercise tolerance decreased [None]

NARRATIVE: CASE EVENT DATE: 20140911
